FAERS Safety Report 15549511 (Version 13)
Quarter: 2023Q4

REPORT INFORMATION
  Report Type: Spontaneous
  Country: US (occurrence: US)
  Receive Date: 20181025
  Receipt Date: 20231205
  Transmission Date: 20240109
  Serious: Yes (Other)
  Sender: FDA-Public Use
  Company Number: US-PFIZER INC-2018428884

PATIENT
  Age: 21 Year
  Sex: Male

DRUGS (2)
  1. XYNTHA [Suspect]
     Active Substance: ANTIHEMOPHILIC FACTOR, HUMAN RECOMBINANT RESIDUES 743-1636 DELETED
     Indication: Factor VIII deficiency
     Dosage: 2,000 UNITS +/- 10% IV (INTRAVENOUS) PRN (AS NEEDED) MINOR BLEEDING
     Route: 042
  2. XYNTHA [Suspect]
     Active Substance: ANTIHEMOPHILIC FACTOR, HUMAN RECOMBINANT RESIDUES 743-1636 DELETED
     Indication: Haemorrhage
     Dosage: 4000 UNITS +/- 10% IV (INTRAVENOUS) PRN (AS NEEDED) MAJOR BLEEDING DAILY
     Route: 042

REACTIONS (6)
  - Haemorrhage [Unknown]
  - Haemophilic arthropathy [Unknown]
  - Pain [Unknown]
  - Musculoskeletal discomfort [Unknown]
  - Treatment noncompliance [Unknown]
  - Intentional product misuse [Unknown]
